FAERS Safety Report 13551388 (Version 1)
Quarter: 2017Q2

REPORT INFORMATION
  Report Type: Spontaneous
  Country: NL (occurrence: NL)
  Receive Date: 20170516
  Receipt Date: 20170516
  Transmission Date: 20170830
  Serious: Yes (Hospitalization)
  Sender: FDA-Public Use
  Company Number: NL-009507513-1705NLD006361

PATIENT
  Age: 38 Year
  Sex: Female

DRUGS (1)
  1. MIRTAZAPINE ORODISPERGEERBARE TABLETTEN [Suspect]
     Active Substance: MIRTAZAPINE
     Indication: DEPRESSION
     Dosage: 1 X PER 1 AN
     Route: 048
     Dates: start: 20161201, end: 20170425

REACTIONS (2)
  - Weight increased [Recovering/Resolving]
  - Surgery [Recovering/Resolving]

NARRATIVE: CASE EVENT DATE: 20170115
